FAERS Safety Report 8576648-X (Version None)
Quarter: 2012Q3

REPORT INFORMATION
  Report Type: 
  Country: None (occurrence: None)
  Receive Date: 20120725
  Receipt Date: 20120718
  Transmission Date: 20120928
  Serious: Yes (Other)
  Sender: FDA-Public Use
  Company Number: ACO_30989_2012

PATIENT
  Age: 63 Year
  Sex: Female

DRUGS (1)
  1. AMPYRA [Suspect]
     Indication: PRODUCT USED FOR UNKNOWN INDICATION
     Dosage: 10 MG, BID, ORAL
     Route: 048

REACTIONS (8)
  - MUSCLE TWITCHING [None]
  - MALAISE [None]
  - ROAD TRAFFIC ACCIDENT [None]
  - LOWER LIMB FRACTURE [None]
  - INSOMNIA [None]
  - FEELING HOT [None]
  - LIMB INJURY [None]
  - INAPPROPRIATE SCHEDULE OF DRUG ADMINISTRATION [None]
